FAERS Safety Report 5155901-6 (Version None)
Quarter: 2006Q4

REPORT INFORMATION
  Report Type: 
  Country: None (occurrence: None)
  Receive Date: 20061114
  Receipt Date: 20060802
  Transmission Date: 20070319
  Serious: Yes (Other)
  Sender: FDA-Public Use
  Company Number: 2006095012

PATIENT
  Sex: Male
  Weight: 136.0791 kg

DRUGS (1)
  1. VIAGRA [Suspect]
     Indication: ERECTILE DYSFUNCTION
     Dosage: (25 MG)

REACTIONS (4)
  - FEELING HOT [None]
  - HEADACHE [None]
  - PYREXIA [None]
  - VISION BLURRED [None]
